FAERS Safety Report 14377408 (Version 2)
Quarter: 2018Q1

REPORT INFORMATION
  Report Type: Spontaneous
  Country: RO (occurrence: RO)
  Receive Date: 20180111
  Receipt Date: 20180117
  Transmission Date: 20180509
  Serious: No
  Sender: FDA-Public Use
  Company Number: RO-PFIZER INC-2018012891

PATIENT
  Age: 29 Year
  Sex: Male

DRUGS (6)
  1. METHADONE [Concomitant]
     Active Substance: METHADONE HYDROCHLORIDE
     Dosage: 100 MG, IN THE MORNING
  2. BETADINE [Concomitant]
     Active Substance: POVIDONE-IODINE
     Indication: WOUND TREATMENT
     Dosage: UNK
  3. METRONIDAZOLE. [Concomitant]
     Active Substance: METRONIDAZOLE
     Indication: ANTIBIOTIC THERAPY
     Dosage: UNK
  4. MOTILIUM [Concomitant]
     Active Substance: DOMPERIDONE
     Dosage: 1 DF, 2X/DAY
  5. ALCOHOL. [Concomitant]
     Active Substance: ALCOHOL
     Indication: WOUND TREATMENT
     Dosage: UNK
  6. MEROPENEM. [Suspect]
     Active Substance: MEROPENEM
     Indication: ANTIBIOTIC THERAPY
     Dosage: UNK

REACTIONS (1)
  - No adverse event [Unknown]
